FAERS Safety Report 22540816 (Version 1)
Quarter: 2023Q2

REPORT INFORMATION
  Report Type: Spontaneous
  Country: US (occurrence: None)
  Receive Date: 20230608
  Receipt Date: 20230608
  Transmission Date: 20230722
  Serious: No
  Sender: FDA-Public Use
  Company Number: None

PATIENT
  Sex: Female

DRUGS (9)
  1. CAPECITABINE [Suspect]
     Active Substance: CAPECITABINE
     Indication: Breast cancer female
     Dosage: FREQUENCY : TWICE A DAY;?
     Route: 048
  2. CARBAMAZEPINE [Concomitant]
     Active Substance: CARBAMAZEPINE
  3. GLYCOPYRROLATE [Concomitant]
  4. GUANFACINE [Concomitant]
  5. LUPRON DEPT [Concomitant]
  6. MULTIVITAMIN [Concomitant]
  7. VIMPAT [Concomitant]
  8. TEMAZEPAM [Concomitant]
     Active Substance: TEMAZEPAM
  9. XGEVA [Concomitant]

REACTIONS (1)
  - Hospice care [None]
